FAERS Safety Report 5223144-3 (Version None)
Quarter: 2007Q1

REPORT INFORMATION
  Report Type: 
  Country: None (occurrence: None)
  Receive Date: 20070129
  Receipt Date: 20070119
  Transmission Date: 20070707
  Serious: Yes (Other)
  Sender: FDA-Public Use
  Company Number: GB-PFIZER INC-2007006018

PATIENT
  Sex: Male

DRUGS (6)
  1. NEURONTIN [Suspect]
     Indication: NEURALGIA
  2. ACE INHIBITOR NOS [Concomitant]
  3. NICORANDIL [Concomitant]
     Indication: CARDIAC DISORDER
  4. ADALAT [Concomitant]
     Indication: CARDIAC DISORDER
  5. METFORMIN HCL [Concomitant]
     Indication: DIABETES MELLITUS NON-INSULIN-DEPENDENT
  6. GLIMEPIRIDE [Concomitant]
     Indication: DIABETES MELLITUS NON-INSULIN-DEPENDENT

REACTIONS (3)
  - CARDIAC DISORDER [None]
  - DIABETES MELLITUS NON-INSULIN-DEPENDENT [None]
  - HYPERKALAEMIA [None]
